FAERS Safety Report 8346400-9 (Version None)
Quarter: 2012Q2

REPORT INFORMATION
  Report Type: 
  Country: None (occurrence: None)
  Receive Date: 20120509
  Receipt Date: 20120426
  Transmission Date: 20120825
  Serious: Yes (Hospitalization, Other)
  Sender: FDA-Public Use
  Company Number: JP-ASTRAZENECA-2012SE27271

PATIENT
  Age: 22721 Day
  Sex: Male

DRUGS (14)
  1. AZD6140 [Suspect]
     Indication: ACUTE CORONARY SYNDROME
     Route: 048
     Dates: start: 20111004
  2. AZUNOL [Concomitant]
     Indication: NASOPHARYNGITIS
     Dosage: PRN
     Route: 048
     Dates: start: 20120305
  3. CARVEDILOL [Concomitant]
     Indication: ISCHAEMIC HEART DISEASE PROPHYLAXIS
     Route: 048
     Dates: start: 20111028
  4. CANDESARTAN CILEXETIL [Concomitant]
     Indication: ISCHAEMIC HEART DISEASE PROPHYLAXIS
     Route: 048
     Dates: start: 20111015
  5. HUSCODE [Concomitant]
     Indication: NASOPHARYNGITIS
     Dosage: PRN
     Route: 048
     Dates: start: 20120305
  6. METHISTA [Concomitant]
     Indication: NASOPHARYNGITIS
     Route: 048
     Dates: start: 20120305
  7. PLACEBO [Suspect]
     Indication: ACUTE CORONARY SYNDROME
     Dosage: DAILY
     Route: 048
     Dates: start: 20111004
  8. LENDORMIN D [Concomitant]
     Indication: INSOMNIA
     Route: 048
     Dates: start: 20111104
  9. ASPIRIN [Suspect]
     Indication: ACUTE CORONARY SYNDROME
     Route: 048
     Dates: start: 20111004
  10. LIVOSTIN [Concomitant]
     Indication: CONJUNCTIVITIS ALLERGIC
     Dosage: PRN
     Route: 047
     Dates: start: 20120214
  11. NAZONEX [Concomitant]
     Indication: RHINITIS ALLERGIC
     Dosage: PRN
     Route: 045
     Dates: start: 20120214
  12. CRESTOR [Concomitant]
     Indication: HYPERLIPIDAEMIA
     Route: 048
  13. LANSOPRAZOLE [Concomitant]
     Indication: GASTRITIS PROPHYLAXIS
     Route: 048
     Dates: start: 20120106
  14. ALLEGRA [Concomitant]
     Indication: RHINITIS ALLERGIC
     Route: 048
     Dates: start: 20120214

REACTIONS (2)
  - ARTERIOVENOUS FISTULA [None]
  - IN-STENT CORONARY ARTERY RESTENOSIS [None]
